FAERS Safety Report 21028696 (Version 5)
Quarter: 2022Q4

REPORT INFORMATION
  Report Type: Spontaneous
  Country: CA (occurrence: CA)
  Receive Date: 20220630
  Receipt Date: 20221020
  Transmission Date: 20230112
  Serious: Yes (Other)
  Sender: FDA-Public Use
  Company Number: CA-PFIZER INC-202200565743

PATIENT
  Age: 24 Year
  Sex: Male
  Weight: 70.45 kg

DRUGS (9)
  1. XELJANZ [Suspect]
     Active Substance: TOFACITINIB CITRATE
     Indication: Colitis ulcerative
     Dosage: 5 MG, 2X/DAY
     Route: 048
     Dates: start: 20220312, end: 202208
  2. XELJANZ [Suspect]
     Active Substance: TOFACITINIB CITRATE
     Dosage: 10 MG, 2X/DAY (DISCONTINUED)
     Route: 048
     Dates: start: 202208, end: 2022
  3. HYDROCORTISONE [Concomitant]
     Active Substance: HYDROCORTISONE
     Dosage: 9 MG
  4. PREDNISONE [Concomitant]
     Active Substance: PREDNISONE
     Dosage: 1 DF, DOSAGE INFO: UNKNOWN
     Route: 065
     Dates: start: 202106
  5. PREDNISONE [Concomitant]
     Active Substance: PREDNISONE
     Dosage: 40MG, TAPER
  6. MESALAMINE [Concomitant]
     Active Substance: MESALAMINE
     Dosage: 1000 MG,SUPPOSITORIES
  7. MESALAMINE [Concomitant]
     Active Substance: MESALAMINE
     Dosage: UNK (ENEMA)
  8. CHOLECALCIFEROL [Concomitant]
     Active Substance: CHOLECALCIFEROL
     Dosage: 2000 IU, 1X/DAY
     Route: 065
  9. XOLAIR [Concomitant]
     Active Substance: OMALIZUMAB
     Indication: Asthma
     Dosage: 1 DF,DOSAGE NOT AVAILABLE
     Route: 065

REACTIONS (8)
  - Sinusitis bacterial [Recovered/Resolved]
  - Loss of personal independence in daily activities [Unknown]
  - Haematochezia [Unknown]
  - Drug ineffective [Unknown]
  - Condition aggravated [Not Recovered/Not Resolved]
  - Condition aggravated [Unknown]
  - Fatigue [Not Recovered/Not Resolved]
  - Impaired quality of life [Unknown]

NARRATIVE: CASE EVENT DATE: 20220101
